FAERS Safety Report 9792770 (Version 1)
Quarter: 2014Q1

REPORT INFORMATION
  Report Type: Spontaneous
  Country: US (occurrence: US)
  Receive Date: 20140102
  Receipt Date: 20140102
  Transmission Date: 20141002
  Serious: No
  Sender: FDA-Public Use
  Company Number: US-SANOFI-AVENTIS-2013SA038338

PATIENT
  Age: 59 Year
  Sex: Male

DRUGS (1)
  1. AUBAGIO [Suspect]
     Indication: MULTIPLE SCLEROSIS
     Dosage: TAKEN FROM: 2 MONTHS AGO
     Route: 048

REACTIONS (2)
  - Diarrhoea [Recovering/Resolving]
  - Alopecia [Not Recovered/Not Resolved]
